FAERS Safety Report 26159901 (Version 2)
Quarter: 2025Q4

REPORT INFORMATION
  Report Type: Spontaneous
  Country: US (occurrence: None)
  Receive Date: 20251216
  Receipt Date: 20251229
  Transmission Date: 20260117
  Serious: Yes (Other)
  Sender: ENDO
  Company Number: US-ENDO USA, INC.-2025-002403

PATIENT
  Sex: Female

DRUGS (6)
  1. ENDOCET [Suspect]
     Active Substance: ACETAMINOPHEN\OXYCODONE HYDROCHLORIDE
     Indication: Back pain
     Dosage: 1 DOSAGE FORM, Q4H (EARLY 2000?S, CUT THE PILLS INTO THIRDS OR HALVES/TOOK 1/3/THEN TOOK 1/2 PILL)
     Route: 061
  2. ENDOCET [Suspect]
     Active Substance: ACETAMINOPHEN\OXYCODONE HYDROCHLORIDE
     Indication: Fibromyalgia
     Dosage: 1 DOSAGE FORM, Q4H (CUT THE PILLS INTO THIRDS OR HALVES/TOOK 1/3/THEN TOOK 1/2 PILL)
     Route: 061
  3. ENDOCET [Suspect]
     Active Substance: ACETAMINOPHEN\OXYCODONE HYDROCHLORIDE
     Indication: Coeliac disease
     Dosage: UNK UNKNOWN, UNKNOWN (CUTTING DOWN)
     Route: 061
  4. ENDOCET [Suspect]
     Active Substance: ACETAMINOPHEN\OXYCODONE HYDROCHLORIDE
     Dosage: UNK UNKNOWN, UNKNOWN (INCREASED THE MEDICATION AFTER CAR ACCIDENT)
     Route: 061
  5. ENDOCET [Suspect]
     Active Substance: ACETAMINOPHEN\OXYCODONE HYDROCHLORIDE
     Dosage: UNK UNKNOWN, UNKNOWN (CUT THE PILLS INTO THIRDS OR HALVES/TOOK 1/3/THEN TOOK 1/2 PILL)
     Route: 061
  6. ENDOCET [Suspect]
     Active Substance: ACETAMINOPHEN\OXYCODONE HYDROCHLORIDE
     Dosage: UNK UNKNOWN, UNKNOWN (CUT THE PILLS INTO THIRDS OR HALVES/TOOK 1/3/THEN TOOK 1/2 PILL) (INCREASED THE DOSE DUE TO PAIN)
     Route: 061

REACTIONS (12)
  - Dental operation [Recovered/Resolved]
  - Road traffic accident [Recovered/Resolved]
  - Weight increased [Not Recovered/Not Resolved]
  - C-reactive protein increased [Recovered/Resolved]
  - Blood homocysteine increased [Recovered/Resolved]
  - Endodontic procedure [Recovered/Resolved]
  - Pain [Not Recovered/Not Resolved]
  - Hypersensitivity [Not Recovered/Not Resolved]
  - Therapeutic product effect variable [Not Recovered/Not Resolved]
  - Intentional product use issue [Not Recovered/Not Resolved]
  - Wrong technique in product usage process [Not Recovered/Not Resolved]
  - Suspected counterfeit product [Unknown]

NARRATIVE: CASE EVENT DATE: 20030101
